FAERS Safety Report 15366851 (Version 4)
Quarter: 2020Q2

REPORT INFORMATION
  Report Type: Spontaneous
  Country: US (occurrence: US)
  Receive Date: 20180910
  Receipt Date: 20200427
  Transmission Date: 20200713
  Serious: Yes (Hospitalization)
  Sender: FDA-Public Use
  Company Number: US-PFIZER INC-2018362270

PATIENT
  Age: 40 Year
  Sex: Female
  Weight: 51.71 kg

DRUGS (6)
  1. RIFABUTIN. [Suspect]
     Active Substance: RIFABUTIN
     Dosage: 300 MG, 1X/DAY
     Route: 048
     Dates: start: 20180803
  2. RIFABUTIN. [Suspect]
     Active Substance: RIFABUTIN
     Dosage: 150 MG, DAILY
     Route: 048
     Dates: start: 20200422
  3. IRON [Concomitant]
     Active Substance: IRON
     Indication: ANAEMIA
     Dosage: UNK
  4. RIFABUTIN. [Suspect]
     Active Substance: RIFABUTIN
     Dosage: 150 MG, DAILY
     Route: 048
  5. XANAX [Concomitant]
     Active Substance: ALPRAZOLAM
     Indication: ANXIETY
     Dosage: 0.5 MG, UNK
  6. RIFABUTIN. [Suspect]
     Active Substance: RIFABUTIN
     Indication: MYCOBACTERIUM AVIUM COMPLEX INFECTION
     Dosage: 150 MG, 1X/DAY
     Route: 048
     Dates: start: 20180731

REACTIONS (5)
  - Hepatic enzyme increased [Unknown]
  - Headache [Recovered/Resolved]
  - Nausea [Recovered/Resolved]
  - Hepatomegaly [Not Recovered/Not Resolved]
  - Vomiting [Recovered/Resolved]

NARRATIVE: CASE EVENT DATE: 20180827
